FAERS Safety Report 24315571 (Version 2)
Quarter: 2025Q4

REPORT INFORMATION
  Report Type: Spontaneous
  Country: US (occurrence: US)
  Receive Date: 20240913
  Receipt Date: 20251009
  Transmission Date: 20260118
  Serious: No
  Sender: ALVOGEN
  Company Number: US-ALVOGEN-2024095362

PATIENT
  Sex: Female

DRUGS (1)
  1. LOREEV XR [Suspect]
     Active Substance: LORAZEPAM
     Indication: Product used for unknown indication
     Dosage: STRENGTH: 3MG

REACTIONS (4)
  - Illness [Unknown]
  - Insomnia [Unknown]
  - Withdrawal syndrome [Unknown]
  - Drug effect less than expected [Unknown]
